FAERS Safety Report 6191048-8 (Version None)
Quarter: 2009Q2

REPORT INFORMATION
  Report Type: 
  Country: None (occurrence: None)
  Receive Date: 20090513
  Receipt Date: 20090402
  Transmission Date: 20091009
  Serious: Yes (Death, Other)
  Sender: FDA-Public Use
  Company Number: KADN20090001

PATIENT
  Age: 20 Year
  Sex: Male
  Weight: 70.7611 kg

DRUGS (2)
  1. MORPHINE [Suspect]
     Indication: DRUG USE FOR UNKNOWN INDICATION
  2. HEROIN [Suspect]
     Indication: DRUG USE FOR UNKNOWN INDICATION

REACTIONS (7)
  - ACCIDENTAL DEATH [None]
  - ALCOHOL POISONING [None]
  - MULTIPLE DRUG OVERDOSE ACCIDENTAL [None]
  - SNORING [None]
  - TRACHEAL OEDEMA [None]
  - UNRESPONSIVE TO STIMULI [None]
  - VISCERAL CONGESTION [None]
